FAERS Safety Report 25114303 (Version 2)
Quarter: 2025Q2

REPORT INFORMATION
  Report Type: Spontaneous
  Country: BE (occurrence: BE)
  Receive Date: 20250324
  Receipt Date: 20250514
  Transmission Date: 20250717
  Serious: Yes (Hospitalization)
  Sender: Alora Pharma
  Company Number: BE-OSMOTICA PHARMACEUTICALS-2025ALO02102

PATIENT
  Age: 46 Year
  Sex: Female

DRUGS (2)
  1. VENLAFAXINE [Suspect]
     Active Substance: VENLAFAXINE HYDROCHLORIDE
     Route: 048
  2. VENLAFAXINE [Suspect]
     Active Substance: VENLAFAXINE HYDROCHLORIDE
     Route: 048

REACTIONS (8)
  - Cardiac failure acute [Recovered/Resolved]
  - Ejection fraction decreased [Recovered/Resolved]
  - Generalised tonic-clonic seizure [Recovered/Resolved]
  - Sinus tachycardia [Recovered/Resolved]
  - Overdose [None]
  - Hypotension [Recovered/Resolved]
  - Oliguria [Recovered/Resolved]
  - Tachycardia [Recovered/Resolved]
